FAERS Safety Report 9857612 (Version 1)
Quarter: 2014Q1

REPORT INFORMATION
  Report Type: Spontaneous
  Country: US (occurrence: US)
  Receive Date: 20140131
  Receipt Date: 20140131
  Transmission Date: 20141002
  Serious: Yes (Other)
  Sender: FDA-Public Use
  Company Number: US-ACCORD-021527

PATIENT
  Age: 43 Year
  Sex: Female

DRUGS (6)
  1. INDERAL [Concomitant]
     Indication: HEART RATE INCREASED
     Dosage: 10 TO 20 MG
     Route: 048
  2. PEPCID AC [Concomitant]
     Route: 048
  3. METHOTREXATE [Suspect]
     Indication: JUVENILE IDIOPATHIC ARTHRITIS
     Dosage: DOSE UNIT: 25 MG/ML
     Route: 058
     Dates: start: 201305
  4. ASPIRIN [Concomitant]
     Indication: PRODUCT USED FOR UNKNOWN INDICATION
     Dosage: DAILY DOSE: 162 MG
     Route: 048
  5. PRILOSEC [Concomitant]
     Route: 048
  6. MEDROL [Concomitant]
     Indication: JUVENILE IDIOPATHIC ARTHRITIS
     Dosage: DOSE TAPERED TO 8MG DAILY
     Route: 048

REACTIONS (8)
  - Nausea [Not Recovered/Not Resolved]
  - Alopecia [Not Recovered/Not Resolved]
  - Fatigue [Not Recovered/Not Resolved]
  - Pruritus [Not Recovered/Not Resolved]
  - Medication error [Recovered/Resolved]
  - Rash [Not Recovered/Not Resolved]
  - Dysgeusia [Not Recovered/Not Resolved]
  - Pollakiuria [Unknown]
